FAERS Safety Report 13895028 (Version 1)
Quarter: 2017Q3

REPORT INFORMATION
  Report Type: Spontaneous
  Country: US (occurrence: None)
  Receive Date: 20170817
  Receipt Date: 20170817
  Transmission Date: 20171127
  Serious: Yes (Other)
  Sender: FDA-Public Use
  Company Number: None

PATIENT
  Age: 17 Year
  Sex: Female

DRUGS (1)
  1. OMNITROPE [Suspect]
     Active Substance: SOMATROPIN
     Indication: HYPOPITUITARISM
     Route: 058
     Dates: start: 20170721

REACTIONS (9)
  - Vision blurred [None]
  - Fatigue [None]
  - Rash [None]
  - Confusional state [None]
  - Snoring [None]
  - Amnesia [None]
  - Peripheral swelling [None]
  - Headache [None]
  - Hypersomnia [None]

NARRATIVE: CASE EVENT DATE: 20170801
